FAERS Safety Report 8524116-3 (Version None)
Quarter: 2012Q3

REPORT INFORMATION
  Report Type: 
  Country: None (occurrence: None)
  Receive Date: 20120720
  Receipt Date: 20120713
  Transmission Date: 20120928
  Serious: Yes (Hospitalization)
  Sender: FDA-Public Use
  Company Number: DE-JNJFOC-20120703880

PATIENT
  Sex: Female

DRUGS (2)
  1. GOLIMUMAB [Suspect]
     Indication: PRODUCT USED FOR UNKNOWN INDICATION
     Route: 058
     Dates: end: 20120501
  2. GOLIMUMAB [Suspect]
     Route: 058

REACTIONS (1)
  - INFECTED SKIN ULCER [None]
